FAERS Safety Report 4622754-1 (Version None)
Quarter: 2005Q1

REPORT INFORMATION
  Report Type: 
  Country: None (occurrence: None)
  Receive Date: 20050329
  Receipt Date: 20050329
  Transmission Date: 20050727
  Serious: Yes (Other)
  Sender: FDA-Public Use
  Company Number: None

PATIENT
  Age: 71 Year
  Sex: Male

DRUGS (4)
  1. CITALOPRAM HYDROBROMIDE [Suspect]
     Dosage: ONE DAILY
     Dates: start: 20050312
  2. GLUCOVANCE [Concomitant]
  3. ATENOLOL [Concomitant]
  4. LIPITOR [Concomitant]

REACTIONS (1)
  - INSOMNIA [None]
